FAERS Safety Report 5422859-1 (Version None)
Quarter: 2007Q3

REPORT INFORMATION
  Report Type: 
  Country: None (occurrence: None)
  Receive Date: 20070820
  Receipt Date: 20070806
  Transmission Date: 20080115
  Serious: Yes (Hospitalization)
  Sender: FDA-Public Use
  Company Number: 2007JP003178

PATIENT
  Age: 63 Year
  Sex: Female
  Weight: 39.5 kg

DRUGS (14)
  1. PROGRAF [Suspect]
     Indication: LUPUS NEPHRITIS
     Dosage: 1.5 MG, UID/QD, ORAL; 0.5 MG, UID/QD, ORAL; 1 MG, /D, ORAL; 2MG, /D, ORAL; /D, ORAL
     Route: 048
     Dates: start: 20070508, end: 20070514
  2. PROGRAF [Suspect]
     Indication: LUPUS NEPHRITIS
     Dosage: 1.5 MG, UID/QD, ORAL; 0.5 MG, UID/QD, ORAL; 1 MG, /D, ORAL; 2MG, /D, ORAL; /D, ORAL
     Route: 048
     Dates: start: 20070517, end: 20070525
  3. PROGRAF [Suspect]
     Indication: LUPUS NEPHRITIS
     Dosage: 1.5 MG, UID/QD, ORAL; 0.5 MG, UID/QD, ORAL; 1 MG, /D, ORAL; 2MG, /D, ORAL; /D, ORAL
     Route: 048
     Dates: start: 20070528, end: 20070613
  4. PROGRAF [Suspect]
     Indication: LUPUS NEPHRITIS
     Dosage: 1.5 MG, UID/QD, ORAL; 0.5 MG, UID/QD, ORAL; 1 MG, /D, ORAL; 2MG, /D, ORAL; /D, ORAL
     Route: 048
     Dates: start: 20070614, end: 20070620
  5. PROGRAF [Suspect]
     Indication: LUPUS NEPHRITIS
     Dosage: 1.5 MG, UID/QD, ORAL; 0.5 MG, UID/QD, ORAL; 1 MG, /D, ORAL; 2MG, /D, ORAL; /D, ORAL
     Route: 048
     Dates: start: 20070621
  6. PREDNISOLONE [Suspect]
     Indication: LUPUS NEPHRITIS
     Dosage: 20 MG, BID, ORAL
     Route: 048
     Dates: start: 20070425, end: 20070525
  7. ENALAPRIL MALEATE [Concomitant]
  8. ASPIRIN [Concomitant]
  9. LIPITOR [Concomitant]
  10. NATEGLINIDE [Concomitant]
  11. SLOW-K [Concomitant]
  12. LENDORMIN (BROTIZOLAM) [Concomitant]
  13. OMEPRAZOLE [Concomitant]
  14. STEROID [Concomitant]

REACTIONS (7)
  - BLOOD POTASSIUM INCREASED [None]
  - BLOOD SODIUM INCREASED [None]
  - DEPRESSION [None]
  - DISORIENTATION [None]
  - DRUG LEVEL INCREASED [None]
  - NO THERAPEUTIC RESPONSE [None]
  - PSYCHOTIC DISORDER [None]
